FAERS Safety Report 18183887 (Version 1)
Quarter: 2020Q3

REPORT INFORMATION
  Report Type: Spontaneous
  Country: US (occurrence: US)
  Receive Date: 20200823
  Receipt Date: 20200823
  Transmission Date: 20201103
  Serious: No
  Sender: FDA-Public Use
  Company Number: US-JNJFOC-20200814940

PATIENT
  Age: 36 Year
  Sex: Female
  Weight: 136.2 kg

DRUGS (1)
  1. WOMENS ROGAINE UNSCENTED [Suspect]
     Active Substance: MINOXIDIL
     Indication: ALOPECIA
     Dosage: HALF CUP FULL?THE DRUG WAS LAST ADMINISTERED ON 08?AUG?2020.
     Route: 061
     Dates: start: 20200808

REACTIONS (2)
  - Application site rash [Recovered/Resolved]
  - Alopecia [Recovered/Resolved]

NARRATIVE: CASE EVENT DATE: 20200808
